FAERS Safety Report 13983060 (Version 1)
Quarter: 2017Q3

REPORT INFORMATION
  Report Type: Spontaneous
  Country: US (occurrence: US)
  Receive Date: 20170918
  Receipt Date: 20170918
  Transmission Date: 20171128
  Serious: Yes (Life-Threatening, Hospitalization, Other)
  Sender: FDA-Public Use
  Company Number: None

PATIENT
  Sex: Male
  Weight: 84.6 kg

DRUGS (1)
  1. FERAHEME [Suspect]
     Active Substance: FERUMOXYTOL NON-STOICHIOMETRIC MAGNETITE
     Indication: RENAL FAILURE
     Dosage: QUANTITY:1 INJECTION(S);OTHER FREQUENCY:2 DOSES 7D APART;?
     Route: 042
     Dates: start: 20170912, end: 20170912

REACTIONS (5)
  - Infusion related reaction [None]
  - Pulse absent [None]
  - Dyspnoea [None]
  - Anaphylactic reaction [None]
  - Mental status changes [None]

NARRATIVE: CASE EVENT DATE: 20170912
